FAERS Safety Report 8998649 (Version 2)
Quarter: 2013Q2

REPORT INFORMATION
  Report Type: Spontaneous
  Country: US (occurrence: US)
  Receive Date: 20130103
  Receipt Date: 20130513
  Transmission Date: 20140414
  Serious: No
  Sender: FDA-Public Use
  Company Number: US-009507513-1212USA007972

PATIENT
  Sex: 0

DRUGS (3)
  1. PEGINTRON [Suspect]
     Dosage: 150 MICROGRAM, QW PER 0.5 ML
     Route: 058
     Dates: start: 20111013, end: 20120322
  2. PEGINTRON [Suspect]
     Dosage: UNK
     Dates: start: 20121017, end: 20130123
  3. VICTRELIS [Suspect]
     Dosage: UNK
     Dates: start: 20121017, end: 20130123

REACTIONS (3)
  - Product label confusion [Unknown]
  - Wrong technique in drug usage process [Unknown]
  - Incorrect dose administered [Unknown]
